FAERS Safety Report 5128775-7 (Version None)
Quarter: 2006Q4

REPORT INFORMATION
  Report Type: 
  Country: None (occurrence: None)
  Receive Date: 20061017
  Receipt Date: 20060919
  Transmission Date: 20070319
  Serious: Yes (Hospitalization)
  Sender: FDA-Public Use
  Company Number: FR-SANOFI-SYNTHELABO-A01200607897

PATIENT
  Age: 78 Year
  Sex: Male

DRUGS (3)
  1. SOTALOL HCL [Concomitant]
     Dosage: UNK
     Route: 065
  2. ELIGARD [Suspect]
     Indication: PROSTATE CANCER
     Dosage: UNK
     Route: 058
     Dates: start: 20060225, end: 20060612
  3. BICALUTAMIDE [Concomitant]
     Dosage: UNK
     Route: 065
     Dates: start: 20060217, end: 20060305

REACTIONS (7)
  - BLISTER [None]
  - DERMATITIS EXFOLIATIVE [None]
  - DRUG INEFFECTIVE [None]
  - DYSHIDROSIS [None]
  - RASH [None]
  - SKIN OEDEMA [None]
  - TOXIC SKIN ERUPTION [None]
